FAERS Safety Report 8446263 (Version 19)
Quarter: 2015Q3

REPORT INFORMATION
  Report Type: Spontaneous
  Country: GB (occurrence: GB)
  Receive Date: 20120307
  Receipt Date: 20150701
  Transmission Date: 20151125
  Serious: Yes (Hospitalization, Other)
  Sender: FDA-Public Use
  Company Number: PHFR2011GB04591

PATIENT
  Age: 49 Year
  Sex: Female

DRUGS (9)
  1. FLUOXETINE [Concomitant]
     Active Substance: FLUOXETINE\FLUOXETINE HYDROCHLORIDE
     Indication: DEPRESSION
     Dosage: 60 MG, DAILY
     Route: 048
     Dates: start: 20110607
  2. CLINDAMYCIN [Concomitant]
     Active Substance: CLINDAMYCIN\CLINDAMYCIN PHOSPHATE
     Indication: EAR INFECTION
     Dosage: UNK
     Route: 048
     Dates: start: 20120417
  3. VANCOMYCIN [Concomitant]
     Active Substance: VANCOMYCIN
     Indication: EAR INFECTION
     Dosage: UNK
     Route: 048
     Dates: start: 20120410, end: 20120417
  4. CLOZARIL [Suspect]
     Active Substance: CLOZAPINE
     Dosage: 400 MG, QD
     Route: 048
     Dates: start: 2010
  5. CLOZARIL [Suspect]
     Active Substance: CLOZAPINE
     Indication: SCHIZOPHRENIA
     Dosage: 550 MG, QD
     Route: 048
     Dates: start: 20070914
  6. CLOZARIL [Suspect]
     Active Substance: CLOZAPINE
     Dosage: 400 MG, QD
     Route: 048
     Dates: start: 2009
  7. CLOZAPINE. [Concomitant]
     Active Substance: CLOZAPINE
     Indication: PSYCHOTIC DISORDER
     Dosage: 400 MG, QD
     Route: 048
  8. SODIUM VALPROATE [Concomitant]
     Active Substance: VALPROATE SODIUM
     Indication: AFFECTIVE DISORDER
     Dosage: 400 MG, QD
     Route: 048
  9. ARIPIPRAZOLE. [Concomitant]
     Active Substance: ARIPIPRAZOLE
     Indication: PSYCHOTIC DISORDER
     Dosage: 5 MG, DAILY
     Route: 048
     Dates: start: 20120607

REACTIONS (12)
  - Otitis externa [Unknown]
  - Psoriasis [Recovered/Resolved]
  - White blood cell count increased [Not Recovered/Not Resolved]
  - External ear cellulitis [Recovered/Resolved]
  - Platelet count increased [Unknown]
  - Urinary incontinence [Not Recovered/Not Resolved]
  - Cellulitis [Unknown]
  - Neutrophil count increased [Not Recovered/Not Resolved]
  - Hyperhidrosis [Unknown]
  - Bronchitis [Recovered/Resolved]
  - Lower respiratory tract infection [Recovered/Resolved]
  - Angina pectoris [Not Recovered/Not Resolved]

NARRATIVE: CASE EVENT DATE: 20110803
